FAERS Safety Report 23312044 (Version 1)
Quarter: 2023Q4

REPORT INFORMATION
  Report Type: Spontaneous
  Country: US (occurrence: US)
  Receive Date: 20231219
  Receipt Date: 20231219
  Transmission Date: 20240109
  Serious: Yes (Hospitalization, Other)
  Sender: FDA-Public Use
  Company Number: US-ALEMBIC PHARMACUETICALS LIMITED-2023SCAL001209

PATIENT

DRUGS (2)
  1. PACLITAXEL [Suspect]
     Active Substance: PACLITAXEL
     Indication: Ovarian cancer
     Dosage: UNK
     Route: 065
  2. CARBOPLATIN [Suspect]
     Active Substance: CARBOPLATIN
     Indication: Ovarian cancer
     Dosage: UNK
     Route: 065

REACTIONS (11)
  - Autoimmune haemolytic anaemia [Recovering/Resolving]
  - Asthenia [Unknown]
  - Lethargy [Unknown]
  - Conjunctival pallor [Unknown]
  - Haemoglobin decreased [Recovering/Resolving]
  - Hyperbilirubinaemia [Recovering/Resolving]
  - Haematocrit decreased [Recovering/Resolving]
  - Reticulocyte count increased [Unknown]
  - Pigment nephropathy [Recovering/Resolving]
  - Blood urea increased [Recovering/Resolving]
  - Blood creatinine increased [Recovering/Resolving]
